FAERS Safety Report 6393672-6 (Version None)
Quarter: 2009Q4

REPORT INFORMATION
  Report Type: 
  Country: None (occurrence: None)
  Receive Date: 20091008
  Receipt Date: 20090925
  Transmission Date: 20100525
  Serious: Yes (Disabling)
  Sender: FDA-Public Use
  Company Number: AU-PFIZER INC-2009261434

PATIENT
  Age: 64 Year

DRUGS (8)
  1. LYRICA [Suspect]
     Indication: NEURALGIA
     Dosage: 75 MG, 1X/DAY
     Route: 048
     Dates: start: 20090805, end: 20090814
  2. IBRUPROFEN [Concomitant]
     Indication: PAIN
     Dosage: 400 MG, 4X/DAY
     Route: 048
  3. BUPRENORPHINE [Concomitant]
     Indication: PAIN
     Dosage: 5 MG, UNK
     Route: 062
  4. BUPRENORPHINE [Concomitant]
     Dosage: 10 MG, UNK
  5. ENDONE [Concomitant]
  6. OXYNORM [Concomitant]
  7. ENDEP [Concomitant]
     Indication: NEURALGIA
     Dosage: 25 MG, 1X/DAY AT NIGHT
     Route: 048
  8. OROXINE [Concomitant]
     Indication: HYPOTHYROIDISM
     Dosage: 100 UG, 1X/DAY
     Route: 048

REACTIONS (12)
  - ANGER [None]
  - BLOOD PRESSURE INCREASED [None]
  - HYPERHIDROSIS [None]
  - HYPOAESTHESIA [None]
  - JOINT SWELLING [None]
  - MUSCLE SPASMS [None]
  - MUSCULAR WEAKNESS [None]
  - OEDEMA PERIPHERAL [None]
  - PAIN IN EXTREMITY [None]
  - PARAESTHESIA [None]
  - PRURITUS GENERALISED [None]
  - TINNITUS [None]
